FAERS Safety Report 7364398-7 (Version None)
Quarter: 2011Q1

REPORT INFORMATION
  Report Type: 
  Country: None (occurrence: None)
  Receive Date: 20110321
  Receipt Date: 20110310
  Transmission Date: 20110831
  Serious: Yes (Death)
  Sender: FDA-Public Use
  Company Number: US-JNJFOC-20110303466

PATIENT
  Sex: Male
  Weight: 66.23 kg

DRUGS (7)
  1. WELLBUTRIN [Concomitant]
  2. NEXIUM [Concomitant]
  3. LIALDA [Concomitant]
  4. LYRICA [Concomitant]
  5. STELARA [Suspect]
     Indication: PSORIASIS
     Route: 058
  6. STELARA [Suspect]
     Route: 058
  7. VECTICAL [Concomitant]

REACTIONS (1)
  - LUNG DISORDER [None]
